FAERS Safety Report 7599894-0 (Version None)
Quarter: 2011Q2

REPORT INFORMATION
  Report Type: 
  Country: None (occurrence: None)
  Receive Date: 20110620
  Receipt Date: 20110314
  Transmission Date: 20111010
  Serious: Yes (Hospitalization)
  Sender: FDA-Public Use
  Company Number: UTC-001527

PATIENT
  Age: 37 Year
  Sex: Female
  Weight: 177 kg

DRUGS (11)
  1. LUNESTA [Concomitant]
  2. MAGNESIUM OXIDE [Concomitant]
  3. COUMADIN [Concomitant]
  4. LASIX [Concomitant]
  5. TYVASO [Suspect]
     Indication: PULMONARY ARTERIAL HYPERTENSION
     Dosage: (3-9 (18-54 MCG) BREATHS 4 TIMES/DAY, INHALATION
     Route: 055
     Dates: start: 20100322
  6. SPIRONOLACTONE [Concomitant]
  7. TRACLEER [Concomitant]
  8. ACETAMINOPHEN [Concomitant]
  9. POTASSIUM CHLORIDE [Concomitant]
  10. REVATIO [Concomitant]
  11. JANUVIA [Concomitant]

REACTIONS (1)
  - FLUID OVERLOAD [None]
